FAERS Safety Report 8791542 (Version 1)
Quarter: 2012Q4

REPORT INFORMATION
  Report Type: Spontaneous
  Country: IT (occurrence: None)
  Receive Date: 20120913
  Receipt Date: 20120913
  Transmission Date: 20130627
  Serious: Yes (Other)
  Sender: FDA-Public Use
  Company Number: FK201202627

PATIENT
  Age: 33 Day
  Sex: Female

DRUGS (3)
  1. PROPRANOLOL HYDROCHLORIDE [Suspect]
     Indication: HAEMANGIOMA
     Route: 048
  2. RANITIDINE [Concomitant]
  3. DOMPERIDONE [Concomitant]

REACTIONS (2)
  - Tumour lysis syndrome [None]
  - Scar [None]
